FAERS Safety Report 6245325-2 (Version None)
Quarter: 2009Q2

REPORT INFORMATION
  Report Type: 
  Country: None (occurrence: None)
  Receive Date: 20090625
  Receipt Date: 20090622
  Transmission Date: 20091009
  Serious: Yes (Death, Life-Threatening, Hospitalization, Disabling)
  Sender: FDA-Public Use
  Company Number: US-GILEAD-2009-0021252

PATIENT
  Sex: Female
  Weight: 74.91 kg

DRUGS (12)
  1. LETAIRIS [Suspect]
     Indication: PULMONARY HYPERTENSION
     Route: 048
     Dates: start: 20080520
  2. LIPITOR [Concomitant]
     Indication: HYPERLIPIDAEMIA
  3. CORGARD [Concomitant]
     Indication: HYPERTENSION
  4. ADVAIR HFA [Concomitant]
     Indication: ASTHMA
  5. SPIRIVA [Concomitant]
     Indication: ASTHMA
  6. ALBUTEROL [Concomitant]
     Indication: ASTHMA
  7. PROAIR HFA [Concomitant]
  8. PREDNISONE [Concomitant]
  9. PLAQUENIL [Concomitant]
  10. NEXIUM [Concomitant]
  11. POTASSIUM CHLORIDE [Concomitant]
  12. AVETAVOLAMID [Concomitant]

REACTIONS (6)
  - CARDIAC DISORDER [None]
  - CARDIO-RESPIRATORY ARREST [None]
  - CEREBROVASCULAR ACCIDENT [None]
  - HYDROPNEUMOTHORAX [None]
  - HYPOXIC ENCEPHALOPATHY [None]
  - LOBAR PNEUMONIA [None]
